FAERS Safety Report 10416767 (Version 1)
Quarter: 2014Q3

REPORT INFORMATION
  Report Type: Spontaneous
  Country: US (occurrence: None)
  Receive Date: 20140826
  Receipt Date: 20140826
  Transmission Date: 20150326
  Serious: Yes (Other)
  Sender: FDA-Public Use
  Company Number: AUR-APL-2014-07830

PATIENT
  Age: 44 Year
  Sex: Female
  Weight: 68 kg

DRUGS (3)
  1. TOPIRAMATE (TOPIRAMATE) [Suspect]
     Active Substance: TOPIRAMATE
     Indication: PRODUCT USED FOR UNKNOWN INDICATION
  2. TOPAMAX [Suspect]
     Active Substance: TOPIRAMATE
     Indication: PRODUCT USED FOR UNKNOWN INDICATION
  3. LEVAQUIN [Suspect]
     Active Substance: LEVOFLOXACIN
     Indication: PRODUCT USED FOR UNKNOWN INDICATION
     Dates: start: 2003, end: 2003

REACTIONS (8)
  - Tooth disorder [None]
  - Dyspnoea [None]
  - Blindness transient [None]
  - Weight decreased [None]
  - Hypersensitivity [None]
  - Abasia [None]
  - Accident [None]
  - Irritable bowel syndrome [None]

NARRATIVE: CASE EVENT DATE: 200206
